FAERS Safety Report 9696850 (Version 1)
Quarter: 2013Q4

REPORT INFORMATION
  Report Type: Spontaneous
  Country: US (occurrence: US)
  Receive Date: 20131119
  Receipt Date: 20131119
  Transmission Date: 20140711
  Serious: No
  Sender: FDA-Public Use
  Company Number: US-GILEAD-2007-0013584

PATIENT
  Age: 64 Year
  Sex: Female

DRUGS (15)
  1. LETAIRIS [Suspect]
     Indication: PULMONARY ARTERIAL HYPERTENSION
     Route: 048
     Dates: start: 20070901, end: 20070912
  2. OXYCODONE [Concomitant]
     Dosage: Q 4-6H PRN
     Route: 048
  3. FAMOTIDINE [Concomitant]
     Route: 048
  4. FLOLAN [Concomitant]
     Route: 042
  5. ATENOLOL [Concomitant]
     Route: 048
  6. LEXAPRO [Concomitant]
     Route: 048
  7. KCL [Concomitant]
     Route: 048
  8. ALBUTEROL-IPRATROPIUM [Concomitant]
     Dosage: Q 4-6 H PRN
     Route: 055
  9. DOXEPIN [Concomitant]
     Route: 048
  10. ARAVA [Concomitant]
     Route: 048
  11. PLAQUENIL [Concomitant]
     Route: 048
  12. ZANAFLEX [Concomitant]
     Route: 048
  13. PREMARIN [Concomitant]
     Route: 048
  14. LASIX [Concomitant]
     Dosage: 80 MG A.M., 40 MG P.M.
     Route: 048
  15. ALBUTEROL [Concomitant]
     Dosage: 90 MCG 1-2PUFFS Q4H PRN
     Route: 055

REACTIONS (2)
  - Sinusitis [Recovered/Resolved]
  - Headache [Recovered/Resolved]
